FAERS Safety Report 11917694 (Version 2)
Quarter: 2016Q1

REPORT INFORMATION
  Report Type: Report from Study
  Country: US (occurrence: US)
  Receive Date: 20160114
  Receipt Date: 20160125
  Transmission Date: 20160526
  Serious: Yes (Death)
  Sender: FDA-Public Use
  Company Number: US-ACTELION-A-US2016-129748

PATIENT
  Age: 65 Year
  Sex: Female

DRUGS (7)
  1. LETAIRIS [Concomitant]
     Active Substance: AMBRISENTAN
  2. SILDENAFIL. [Concomitant]
     Active Substance: SILDENAFIL
  3. AMIODARONE [Concomitant]
     Active Substance: AMIODARONE
  4. GLEEVEC [Concomitant]
     Active Substance: IMATINIB MESYLATE
  5. VELETRI [Suspect]
     Active Substance: EPOPROSTENOL
     Indication: PULMONARY ARTERIAL HYPERTENSION
     Dosage: 29 UNK, UNK
     Route: 042
     Dates: start: 201510
  6. VELETRI [Suspect]
     Active Substance: EPOPROSTENOL
     Dosage: 34 NG/KG, PER MIN
     Route: 042
     Dates: end: 20151231
  7. ADCIRCA [Concomitant]
     Active Substance: TADALAFIL

REACTIONS (1)
  - Right ventricular failure [Fatal]

NARRATIVE: CASE EVENT DATE: 20151231
